FAERS Safety Report 8402430-X (Version None)
Quarter: 2012Q2

REPORT INFORMATION
  Report Type: 
  Country: None (occurrence: None)
  Receive Date: 20120601
  Receipt Date: 20120524
  Transmission Date: 20120825
  Serious: Yes (Hospitalization)
  Sender: FDA-Public Use
  Company Number: ES-B.I. PHARMACEUTICALS,INC./RIDGEFIELD-2012-ES-00232ES

PATIENT
  Age: 85 Year
  Sex: Female

DRUGS (1)
  1. PRADAXA [Suspect]
     Indication: ATRIAL FIBRILLATION
     Dosage: 220 MG
     Route: 048
     Dates: start: 20120315, end: 20120328

REACTIONS (5)
  - GASTROINTESTINAL HAEMORRHAGE [None]
  - ACUTE PRERENAL FAILURE [None]
  - ANAEMIA [None]
  - HAEMATOCHEZIA [None]
  - MELAENA [None]
